FAERS Safety Report 10210229 (Version 1)
Quarter: 2014Q2

REPORT INFORMATION
  Report Type: Spontaneous
  Country: US (occurrence: US)
  Receive Date: 20140602
  Receipt Date: 20140602
  Transmission Date: 20141212
  Serious: No
  Sender: FDA-Public Use
  Company Number: US-009507513-1405USA010567

PATIENT
  Age: 9 Year
  Sex: Female

DRUGS (2)
  1. CLARITIN CHEWABLE TABLETS [Suspect]
     Indication: HYPERSENSITIVITY
     Dosage: UNK, ONCE
     Route: 048
     Dates: start: 20140505
  2. CLARITIN CHEWABLE TABLETS [Suspect]
     Dosage: 5 MG, QD PRN
     Route: 048

REACTIONS (2)
  - Underdose [Unknown]
  - Drug effect decreased [Unknown]
